FAERS Safety Report 7779048-5 (Version None)
Quarter: 2011Q3

REPORT INFORMATION
  Report Type: 
  Country: None (occurrence: None)
  Receive Date: 20110926
  Receipt Date: 20110531
  Transmission Date: 20111222
  Serious: No
  Sender: FDA-Public Use
  Company Number: US-BAYER-2011-047220

PATIENT
  Age: 30 Year
  Sex: Female
  Weight: 51.701 kg

DRUGS (3)
  1. RELPAX [Concomitant]
     Dosage: UNK UNK, PRN
  2. ADDERALL 5 [Concomitant]
  3. ULTRAVIST 150 [Suspect]
     Indication: COMPUTERISED TOMOGRAM
     Dosage: 100 ML, ONCE
     Route: 042
     Dates: start: 20110531, end: 20110531

REACTIONS (1)
  - ERYTHEMA [None]
